FAERS Safety Report 8022440-4 (Version None)
Quarter: 2012Q1

REPORT INFORMATION
  Report Type: 
  Country: None (occurrence: None)
  Receive Date: 20120104
  Receipt Date: 20111229
  Transmission Date: 20120608
  Serious: Yes (Hospitalization)
  Sender: FDA-Public Use
  Company Number: DE-ABBOTT-11P-062-0868384-00

PATIENT
  Sex: Female
  Weight: 53 kg

DRUGS (8)
  1. PREDNISONE TAB [Concomitant]
     Indication: PRODUCT USED FOR UNKNOWN INDICATION
     Dates: start: 20111001
  2. HUMIRA [Suspect]
     Indication: CROHN'S DISEASE
     Dates: start: 20101004, end: 20110925
  3. MESALAMINE [Concomitant]
     Indication: PRODUCT USED FOR UNKNOWN INDICATION
     Dates: start: 20111001
  4. CORTISONE ACETATE [Concomitant]
     Indication: PRODUCT USED FOR UNKNOWN INDICATION
  5. AZATHIOPRINE [Concomitant]
     Indication: PRODUCT USED FOR UNKNOWN INDICATION
  6. RAMIPRIL [Concomitant]
     Indication: PRODUCT USED FOR UNKNOWN INDICATION
     Dates: start: 20110701
  7. LASIX [Concomitant]
     Indication: PRODUCT USED FOR UNKNOWN INDICATION
     Dates: start: 20110701
  8. BISOPROLOL FUMARATE [Concomitant]
     Indication: PRODUCT USED FOR UNKNOWN INDICATION
     Dates: start: 20110701

REACTIONS (8)
  - CARDIOMYOPATHY [None]
  - HEART VALVE INCOMPETENCE [None]
  - NAUSEA [None]
  - ASTHENIA [None]
  - FATIGUE [None]
  - EJECTION FRACTION DECREASED [None]
  - DYSPNOEA [None]
  - ARRHYTHMIA [None]
